FAERS Safety Report 6970938-X (Version None)
Quarter: 2010Q3

REPORT INFORMATION
  Report Type: 
  Country: None (occurrence: None)
  Receive Date: 20100824
  Receipt Date: 20091215
  Transmission Date: 20110219
  Serious: Yes (Other)
  Sender: FDA-Public Use
  Company Number: 2009310860

PATIENT
  Age: 74 Year
  Sex: Male

DRUGS (6)
  1. NORVASC [Suspect]
     Indication: HYPERTENSION
  2. VIAGRA [Suspect]
     Indication: ERECTILE DYSFUNCTION
  3. LUNESTA [Suspect]
     Indication: INSOMNIA
     Dosage: 1 OR 2 MG, 1X/DAY, ORAL ; 3 MG, 1X/DAY, ORAL
     Route: 048
     Dates: start: 20090901, end: 20090901
  4. LUNESTA [Suspect]
     Indication: INSOMNIA
     Dosage: 1 OR 2 MG, 1X/DAY, ORAL ; 3 MG, 1X/DAY, ORAL
     Route: 048
     Dates: start: 20090901, end: 20091001
  5. TOPROL-XL [Suspect]
     Indication: HYPERTENSION
  6. VALSARTAN [Suspect]
     Indication: HYPERTENSION

REACTIONS (1)
  - BLOOD PRESSURE DECREASED [None]
